FAERS Safety Report 4315491-4 (Version None)
Quarter: 2004Q1

REPORT INFORMATION
  Report Type: 
  Country: None (occurrence: None)
  Receive Date: 20040311
  Receipt Date: 20040302
  Transmission Date: 20041129
  Serious: Yes (Disabling)
  Sender: FDA-Public Use
  Company Number: WAES 0403GBR00040

PATIENT
  Age: 60 Year
  Sex: Female
  Weight: 94 kg

DRUGS (8)
  1. ASPIRIN [Concomitant]
  2. ATENOLOL AND CHLORTHALIDONE [Concomitant]
  3. ATORVASTATIN CALCIUM [Concomitant]
  4. ZETIA [Suspect]
     Indication: LIPIDS ABNORMAL
     Route: 048
     Dates: start: 20031219, end: 20040121
  5. GLICLAZIDE [Concomitant]
  6. METFORMIN [Concomitant]
  7. RAMIPRIL [Concomitant]
  8. ROSIGLITAZONE MALEATE [Concomitant]

REACTIONS (1)
  - PAROTID GLAND ENLARGEMENT [None]
